FAERS Safety Report 23796294 (Version 3)
Quarter: 2024Q3

REPORT INFORMATION
  Report Type: Report from Study
  Country: US (occurrence: US)
  Receive Date: 20240430
  Receipt Date: 20240814
  Transmission Date: 20241016
  Serious: Yes (Hospitalization)
  Sender: ABBVIE
  Company Number: US-ABBVIE-5735780

PATIENT
  Sex: Male

DRUGS (2)
  1. SKYRIZI [Suspect]
     Active Substance: RISANKIZUMAB-RZAA
     Indication: Psoriasis
     Dosage: LAST ADMIN DATE- OCT 2023
     Route: 058
     Dates: start: 20231020
  2. SKYRIZI [Suspect]
     Active Substance: RISANKIZUMAB-RZAA
     Route: 058
     Dates: start: 20231025

REACTIONS (5)
  - Respiratory tract congestion [Recovering/Resolving]
  - Viral infection [Unknown]
  - Chronic obstructive pulmonary disease [Unknown]
  - Localised infection [Recovering/Resolving]
  - Cognitive disorder [Unknown]

NARRATIVE: CASE EVENT DATE: 20240101
